FAERS Safety Report 23592414 (Version 1)
Quarter: 2024Q1

REPORT INFORMATION
  Report Type: Report from Study
  Country: US (occurrence: US)
  Receive Date: 20240304
  Receipt Date: 20240304
  Transmission Date: 20240410
  Serious: Yes (Other)
  Sender: FDA-Public Use
  Company Number: US-UCBSA-2023061363

PATIENT
  Sex: Female
  Weight: 155 kg

DRUGS (1)
  1. LACOSAMIDE [Suspect]
     Active Substance: LACOSAMIDE
     Indication: Seizure
     Dosage: 150 MILLIGRAM, 2X/DAY (BID)

REACTIONS (3)
  - Seizure [Not Recovered/Not Resolved]
  - Balance disorder [Not Recovered/Not Resolved]
  - Stress [Not Recovered/Not Resolved]
